FAERS Safety Report 4676540-7 (Version None)
Quarter: 2005Q2

REPORT INFORMATION
  Report Type: 
  Country: None (occurrence: None)
  Receive Date: 20050527
  Receipt Date: 20040527
  Transmission Date: 20051028
  Serious: Yes (Hospitalization, Other)
  Sender: FDA-Public Use
  Company Number: FR-ABBOTT-04P-056-0262652-00

PATIENT
  Sex: Female
  Weight: 61.5 kg

DRUGS (11)
  1. HUMIRA [Suspect]
     Indication: RHEUMATOID ARTHRITIS
     Route: 058
     Dates: start: 20030926, end: 20031223
  2. ETANERCEPT [Concomitant]
     Indication: RHEUMATOID ARTHRITIS
     Route: 058
     Dates: start: 20030123, end: 20030408
  3. METHOTREXATE [Concomitant]
     Indication: RHEUMATOID ARTHRITIS
     Route: 048
     Dates: start: 19980101, end: 20030612
  4. PREDNISONE [Concomitant]
     Indication: RHEUMATOID ARTHRITIS
     Route: 048
     Dates: start: 19980101, end: 20031127
  5. PREDNISONE [Concomitant]
     Route: 048
     Dates: start: 20030501
  6. CLONAZEPAM [Concomitant]
     Indication: INSOMNIA
     Route: 048
     Dates: start: 20030923
  7. KETOPROFEN [Concomitant]
     Indication: RHEUMATOID ARTHRITIS
     Route: 048
     Dates: start: 19980101
  8. OMEPRAZOLE [Concomitant]
     Indication: PROPHYLAXIS AGAINST GASTROINTESTINAL ULCER
     Route: 048
     Dates: start: 19980101
  9. LEKOVIT CA [Concomitant]
     Indication: OSTEOPOROSIS PROPHYLAXIS
     Route: 048
     Dates: start: 20030612
  10. PROPOFAN [Concomitant]
     Indication: PAIN
     Route: 048
     Dates: start: 20030101
  11. AZATHIOPRINE [Concomitant]
     Indication: RHEUMATOID ARTHRITIS
     Dates: start: 20031127

REACTIONS (26)
  - ASTHENIA [None]
  - ATELECTASIS [None]
  - BENCE JONES PROTEIN URINE PRESENT [None]
  - BIOPSY BONE MARROW ABNORMAL [None]
  - BLOOD IMMUNOGLOBULIN G INCREASED [None]
  - CHEST PAIN [None]
  - COUGH [None]
  - EOSINOPHIL COUNT DECREASED [None]
  - GAMMOPATHY [None]
  - HAEMANGIOMA OF LIVER [None]
  - INTERSTITIAL LUNG DISEASE [None]
  - INTERVERTEBRAL DISC DEGENERATION [None]
  - MONOCYTE COUNT DECREASED [None]
  - MULTIPLE MYELOMA [None]
  - NEPHROLITHIASIS [None]
  - NEUTROPHIL COUNT INCREASED [None]
  - OSTEOPENIA [None]
  - PERICARDITIS [None]
  - PLASMA CELL DISORDER [None]
  - PLEURAL EFFUSION [None]
  - PULMONARY EMBOLISM [None]
  - RASH MACULAR [None]
  - RHEUMATOID ARTHRITIS [None]
  - SWELLING [None]
  - SYNOVIAL DISORDER [None]
  - WEIGHT DECREASED [None]
